FAERS Safety Report 8089305-3 (Version None)
Quarter: 2012Q1

REPORT INFORMATION
  Report Type: 
  Country: None (occurrence: None)
  Receive Date: 20120128
  Receipt Date: 20110705
  Transmission Date: 20120608
  Serious: Yes (Hospitalization)
  Sender: FDA-Public Use
  Company Number: US-ABBOTT-11P-163-0719946-00

PATIENT
  Sex: Female

DRUGS (2)
  1. HUMIRA [Suspect]
     Indication: CROHN'S DISEASE
     Dates: start: 20100401, end: 20110401
  2. HUMIRA [Suspect]
     Dates: start: 20110401

REACTIONS (6)
  - ABDOMINAL PAIN UPPER [None]
  - INJECTION SITE PAIN [None]
  - BACK PAIN [None]
  - INJECTION SITE URTICARIA [None]
  - WRONG TECHNIQUE IN DRUG USAGE PROCESS [None]
  - CROHN'S DISEASE [None]
